FAERS Safety Report 23567613 (Version 3)
Quarter: 2025Q3

REPORT INFORMATION
  Report Type: Spontaneous
  Country: EU (occurrence: EU)
  Receive Date: 20240226
  Receipt Date: 20250822
  Transmission Date: 20251021
  Serious: Yes (Other)
  Sender: SANDOZ
  Company Number: EU-MYLANLABS-2023M1134813

PATIENT
  Age: 47 Year
  Sex: Male

DRUGS (17)
  1. CYCLOSPORINE [Suspect]
     Active Substance: CYCLOSPORINE
     Route: 065
  2. CYCLOSPORINE [Suspect]
     Active Substance: CYCLOSPORINE
     Indication: Immunosuppression
     Route: 065
  3. MYCOPHENOLATE MOFETIL [Suspect]
     Active Substance: MYCOPHENOLATE MOFETIL
     Indication: Immunosuppression
     Route: 065
  4. MYCOPHENOLATE MOFETIL [Suspect]
     Active Substance: MYCOPHENOLATE MOFETIL
     Indication: Prophylaxis against transplant rejection
  5. ALLOPURINOL [Concomitant]
     Active Substance: ALLOPURINOL
     Indication: Cardiac failure
     Route: 065
  6. AMIODARONE [Concomitant]
     Active Substance: AMIODARONE
     Indication: Cardiac failure
     Route: 065
  7. CARVEDILOL [Concomitant]
     Active Substance: CARVEDILOL
     Indication: Cardiac failure
     Route: 065
  8. CYCLOSPORINE [Concomitant]
     Active Substance: CYCLOSPORINE
     Indication: Product used for unknown indication
     Route: 065
  9. FUROSEMIDE [Concomitant]
     Active Substance: FUROSEMIDE
     Indication: Cardiac failure
     Route: 065
  10. MYCOPHENOLATE MOFETIL [Concomitant]
     Active Substance: MYCOPHENOLATE MOFETIL
     Indication: Immunosuppression
     Route: 065
  11. PERINDOPRIL [Concomitant]
     Active Substance: PERINDOPRIL
     Indication: Cardiac failure
     Route: 065
  12. PREDNISONE [Concomitant]
     Active Substance: PREDNISONE
     Route: 065
  13. PREDNISONE [Concomitant]
     Active Substance: PREDNISONE
     Indication: Product used for unknown indication
     Route: 065
  14. PREDNISONE [Concomitant]
     Active Substance: PREDNISONE
     Route: 065
  15. SPIRONOLACTONE [Concomitant]
     Active Substance: SPIRONOLACTONE
     Indication: Cardiac failure
     Route: 065
  16. TACROLIMUS [Concomitant]
     Active Substance: TACROLIMUS
     Indication: Immunosuppression
     Route: 065
  17. WARFARIN [Concomitant]
     Active Substance: WARFARIN
     Indication: Cardiac failure
     Route: 065

REACTIONS (4)
  - Nephropathy toxic [Recovered/Resolved]
  - Blood creatinine increased [Recovered/Resolved]
  - Off label use [Unknown]
  - No adverse event [Unknown]
